FAERS Safety Report 13372776 (Version 1)
Quarter: 2017Q1

REPORT INFORMATION
  Report Type: Spontaneous
  Country: US (occurrence: US)
  Receive Date: 20170324
  Receipt Date: 20170324
  Transmission Date: 20170429
  Serious: Yes (Disabling)
  Sender: FDA-Public Use
  Company Number: None

PATIENT
  Age: 31 Year
  Sex: Female
  Weight: 63 kg

DRUGS (1)
  1. HELIOPLEX [Suspect]
     Active Substance: AVOBENZONE\OXYBENZONE
     Indication: PHOTOSENSITIVITY REACTION
     Route: 061

REACTIONS (5)
  - Application site pain [None]
  - Application site reaction [None]
  - Application site erythema [None]
  - Urticaria [None]
  - Application site pruritus [None]

NARRATIVE: CASE EVENT DATE: 20170320
